FAERS Safety Report 6196001-6 (Version None)
Quarter: 2009Q2

REPORT INFORMATION
  Report Type: 
  Country: None (occurrence: None)
  Receive Date: 20090520
  Receipt Date: 20060802
  Transmission Date: 20091009
  Serious: Yes (Death, Disabling)
  Sender: FDA-Public Use
  Company Number: NL-ROCHE-597575

PATIENT
  Sex: Female

DRUGS (1)
  1. CAPECITABINE [Suspect]
     Route: 048
     Dates: start: 20040923, end: 20040927

REACTIONS (4)
  - DIARRHOEA [None]
  - ILEUS [None]
  - NAUSEA [None]
  - VOMITING [None]
